FAERS Safety Report 8781845 (Version 2)
Quarter: 2012Q4

REPORT INFORMATION
  Report Type: 
  Country: JP (occurrence: JP)
  Receive Date: 20120913
  Receipt Date: 20121012
  Transmission Date: 20130627
  Serious: Yes (Other)
  Sender: FDA-Public Use
  Company Number: JP-AMGEN-JPNSP2012056303

PATIENT
  Age: 72 Year
  Sex: Male

DRUGS (4)
  1. ROMIPLOSTIM [Suspect]
     Indication: AUTOIMMUNE THROMBOCYTOPENIA
     Dosage: 1 mug/kg, qwk
     Route: 058
     Dates: start: 201108, end: 2011
  2. ROMIPLOSTIM [Suspect]
     Dosage: 4 mug/kg, qwk
     Route: 058
  3. ROMIPLOSTIM [Suspect]
     Dosage: 2 mug/kg, qwk
     Route: 058
  4. IMMUNOGLOBULIN                     /00025201/ [Concomitant]
     Indication: AUTOIMMUNE THROMBOCYTOPENIA
     Dosage: 400 mg/kg, qd

REACTIONS (5)
  - Potentiating drug interaction [Recovered/Resolved]
  - Platelet count increased [Recovered/Resolved]
  - Splenectomy [Recovered/Resolved]
  - Therapeutic response decreased [Recovered/Resolved]
  - Arthralgia [Recovering/Resolving]
